FAERS Safety Report 5197421-9 (Version None)
Quarter: 2006Q4

REPORT INFORMATION
  Report Type: 
  Country: None (occurrence: None)
  Receive Date: 20060927
  Receipt Date: 20060626
  Transmission Date: 20070319
  Serious: Yes (Other)
  Sender: FDA-Public Use
  Company Number: 2006RL000235

PATIENT

DRUGS (2)
  1. FENOFIBRATE [Suspect]
     Indication: MIXED HYPERLIPIDAEMIA
     Dosage: 160 MG, QD;
  2. EZETIMIBE [Suspect]
     Indication: MIXED HYPERLIPIDAEMIA
     Dosage: 10 MG, QD;

REACTIONS (1)
  - CHOLECYSTITIS [None]
